FAERS Safety Report 6204933-5 (Version None)
Quarter: 2009Q2

REPORT INFORMATION
  Report Type: 
  Country: None (occurrence: None)
  Receive Date: 20090526
  Receipt Date: 20090513
  Transmission Date: 20091009
  Serious: Yes (Hospitalization)
  Sender: FDA-Public Use
  Company Number: OMPQ-NO-0905S-0356

PATIENT
  Age: 79 Year
  Sex: Female

DRUGS (8)
  1. OMNIPAQUE 300 [Suspect]
     Indication: HEPATITIS C
     Dosage: 80 ML, SINGLE DOSE, I.V.
     Route: 042
     Dates: start: 20090428, end: 20090428
  2. URSODEOXYCHOLIC ACID (URSO) [Concomitant]
  3. IMIDAPRIL HYDROCHLORIDE (TANATRIL) [Concomitant]
  4. INDAPAMIDE (NATRIX) [Concomitant]
  5. POTASSIUM CHLORIDE (SLOW-K) [Concomitant]
  6. TEPRENONE (SELBEX) [Concomitant]
  7. LATANOPROST (XALATAN) [Concomitant]
  8. TIMOLOL MALEATE (TIMOPTOL) [Concomitant]

REACTIONS (11)
  - BLOOD PRESSURE DECREASED [None]
  - BODY TEMPERATURE DECREASED [None]
  - C-REACTIVE PROTEIN INCREASED [None]
  - CONTRAST MEDIA REACTION [None]
  - DISCOMFORT [None]
  - FIBRIN D DIMER INCREASED [None]
  - FIBRIN DEGRADATION PRODUCTS INCREASED [None]
  - LOSS OF CONSCIOUSNESS [None]
  - NAUSEA [None]
  - PLATELET COUNT DECREASED [None]
  - PYREXIA [None]
